FAERS Safety Report 18784642 (Version 1)
Quarter: 2021Q1

REPORT INFORMATION
  Report Type: Report from Study
  Country: US (occurrence: US)
  Receive Date: 20210126
  Receipt Date: 20210126
  Transmission Date: 20210419
  Serious: Yes (Hospitalization)
  Sender: FDA-Public Use
  Company Number: US-PFIZER INC-2020341084

PATIENT
  Age: 55 Year
  Sex: Female

DRUGS (2)
  1. IBRANCE [Suspect]
     Active Substance: PALBOCICLIB
     Indication: BREAST CANCER FEMALE
     Dosage: 125 MG, CYCLIC (ONCE DAILY, CYCLE: 21 DAYS ON, 7 DAYS OFF)
     Route: 048
     Dates: start: 20200715, end: 20201103
  2. IBRANCE [Suspect]
     Active Substance: PALBOCICLIB
     Dosage: 125 MG, CYCLIC (21 DAYS ON, AND 7 DAYS OFF)
     Route: 048
     Dates: start: 20201108, end: 20201210

REACTIONS (11)
  - Headache [Unknown]
  - Vomiting [Unknown]
  - Nausea [Recovered/Resolved]
  - Abdominal discomfort [Unknown]
  - Vomiting [Recovered/Resolved]
  - Bone pain [Unknown]
  - Migraine [Unknown]
  - Skin laceration [Unknown]
  - Back pain [Unknown]
  - Decreased appetite [Unknown]
  - Bleeding time prolonged [Unknown]

NARRATIVE: CASE EVENT DATE: 2020
